FAERS Safety Report 8761337 (Version 4)
Quarter: 2012Q4

REPORT INFORMATION
  Report Type: 
  Country: US (occurrence: US)
  Receive Date: 20120830
  Receipt Date: 20121018
  Transmission Date: 20130627
  Serious: Yes (Hospitalization, Other)
  Sender: FDA-Public Use
  Company Number: US-009507513-1111USA03240

PATIENT

DRUGS (3)
  1. FOSAMAX [Suspect]
     Dosage: 70 mg, UNK
     Route: 048
     Dates: end: 201102
  2. CALCIUM (UNSPECIFIED) (+) VITAMIN D (UNSPECIFIED) [Concomitant]
     Dosage: 500 mg, bid
     Route: 048
  3. EVISTA [Concomitant]
     Indication: OSTEOPOROSIS
     Route: 048

REACTIONS (18)
  - Femur fracture [Unknown]
  - Lung neoplasm malignant [Unknown]
  - Malignant melanoma [Unknown]
  - Open reduction of fracture [Unknown]
  - Hypertension [Unknown]
  - Hyperlipidaemia [Unknown]
  - Meniscus injury [Unknown]
  - Fibrocystic breast disease [Unknown]
  - Fall [Unknown]
  - Gout [Unknown]
  - Hypothyroidism [Unknown]
  - Fall [Unknown]
  - Cardiac murmur [Unknown]
  - Chronic obstructive pulmonary disease [Unknown]
  - Gait disturbance [Unknown]
  - Osteopenia [Unknown]
  - Constipation [Unknown]
  - Body height decreased [Unknown]
